FAERS Safety Report 25012181 (Version 1)
Quarter: 2025Q1

REPORT INFORMATION
  Report Type: Spontaneous
  Country: US (occurrence: US)
  Receive Date: 20250226
  Receipt Date: 20250226
  Transmission Date: 20250409
  Serious: No
  Sender: TAKEDA
  Company Number: US-TAKEDA-2025TUS019644

PATIENT
  Sex: Female
  Weight: 50 kg

DRUGS (4)
  1. ENTYVIO [Suspect]
     Active Substance: VEDOLIZUMAB
     Indication: Colitis ulcerative
  2. NALTREXONE [Concomitant]
     Active Substance: NALTREXONE
     Dosage: 2.5 MILLIGRAM, BID
  3. HYOSCYAMINE [Concomitant]
     Active Substance: HYOSCYAMINE
  4. FINASTERIDE [Concomitant]
     Active Substance: FINASTERIDE

REACTIONS (2)
  - Implant site pain [Unknown]
  - Dental restoration failure [Unknown]
